FAERS Safety Report 6543689-3 (Version None)
Quarter: 2010Q1

REPORT INFORMATION
  Report Type: 
  Country: None (occurrence: None)
  Receive Date: 20100119
  Receipt Date: 20100119
  Transmission Date: 20100710
  Serious: Yes (Disabling)
  Sender: FDA-Public Use
  Company Number: None

PATIENT
  Age: 51 Year
  Sex: Male
  Weight: 64.8644 kg

DRUGS (1)
  1. TRANSDERM SCOP [Suspect]
     Indication: MOTION SICKNESS
     Dosage: 1 PATCH 3 TO 4 DAYS TRANSDERMAL
     Route: 062
     Dates: start: 20091226, end: 20100103

REACTIONS (6)
  - BLOOD PRESSURE DIASTOLIC INCREASED [None]
  - DIZZINESS [None]
  - HEAD DISCOMFORT [None]
  - IMPAIRED WORK ABILITY [None]
  - MALAISE [None]
  - VOMITING [None]
